FAERS Safety Report 4346551-X (Version None)
Quarter: 2004Q2

REPORT INFORMATION
  Report Type: 
  Country: None (occurrence: None)
  Receive Date: 20040426
  Receipt Date: 20040115
  Transmission Date: 20050107
  Serious: No
  Sender: FDA-Public Use
  Company Number: US-BRISTOL-MYERS SQUIBB COMPANY-12480018

PATIENT
  Age: 70 Year
  Sex: Female
  Weight: 73 kg

DRUGS (8)
  1. TAXOL [Suspect]
     Indication: OVARIAN CANCER
     Route: 042
  2. CARBOPLATIN [Suspect]
     Indication: OVARIAN CANCER
  3. DOXIL [Suspect]
     Indication: OVARIAN CANCER
  4. SYNTHROID [Concomitant]
  5. MULTI-VITAMINS [Concomitant]
  6. VITAMIN B6 [Concomitant]
  7. CALCIUM [Concomitant]
  8. VITAMIN C [Concomitant]

REACTIONS (1)
  - NEUROPATHY PERIPHERAL [None]
